FAERS Safety Report 13771508 (Version 8)
Quarter: 2018Q2

REPORT INFORMATION
  Report Type: Spontaneous
  Country: JP (occurrence: JP)
  Receive Date: 20170720
  Receipt Date: 20180627
  Transmission Date: 20180711
  Serious: Yes (Death, Hospitalization, Other)
  Sender: FDA-Public Use
  Company Number: JP-009507513-1706JPN000308J

PATIENT
  Age: 48 Year
  Sex: Male
  Weight: 80 kg

DRUGS (2)
  1. BETAMETHASONE. [Concomitant]
     Active Substance: BETAMETHASONE
     Indication: LUNG ADENOCARCINOMA STAGE IV
     Dosage: 2.0 MG, BID
     Route: 048
  2. KEYTRUDA [Suspect]
     Active Substance: PEMBROLIZUMAB
     Indication: LUNG ADENOCARCINOMA STAGE IV
     Dosage: 200 MG, Q3W
     Route: 041
     Dates: start: 20170510, end: 20170605

REACTIONS (4)
  - Malignant neoplasm progression [Fatal]
  - Cholangitis sclerosing [Fatal]
  - Lymphangiosis carcinomatosa [Recovering/Resolving]
  - Hepatic function abnormal [Recovering/Resolving]

NARRATIVE: CASE EVENT DATE: 20170516
